FAERS Safety Report 6787363-7 (Version None)
Quarter: 2010Q2

REPORT INFORMATION
  Report Type: 
  Country: None (occurrence: None)
  Receive Date: 20100623
  Receipt Date: 20060420
  Transmission Date: 20101027
  Serious: No
  Sender: FDA-Public Use
  Company Number: US-PFIZER INC-2006057292

PATIENT
  Age: 78 Year
  Sex: Male
  Weight: 90.72 kg

DRUGS (3)
  1. ACCURETIC [Suspect]
     Indication: HYPERTENSION
     Dosage: 20/12.5 MG,ONCE DAILY
     Route: 048
  2. ALLOPURINOL [Interacting]
     Indication: GOUT
     Route: 065
     Dates: start: 20050101, end: 20050101
  3. COUMADIN [Concomitant]
     Route: 065

REACTIONS (3)
  - DRUG INTERACTION [None]
  - GOUT [None]
  - OEDEMA PERIPHERAL [None]
